FAERS Safety Report 20324486 (Version 6)
Quarter: 2024Q4

REPORT INFORMATION
  Report Type: Spontaneous
  Country: US (occurrence: US)
  Receive Date: 20220111
  Receipt Date: 20241112
  Transmission Date: 20250114
  Serious: Yes (Other)
  Sender: SUNOVION
  Company Number: US-MYOVANT SCIENCES GMBH-2021MYSCI1000580

PATIENT

DRUGS (9)
  1. ORGOVYX [Suspect]
     Active Substance: RELUGOLIX
     Indication: Prostate cancer
     Dosage: 360 MILLIGRAM, ONE TIME DOSE
     Route: 048
     Dates: start: 20211021, end: 20211021
  2. ORGOVYX [Suspect]
     Active Substance: RELUGOLIX
     Dosage: 120 MILLIGRAM, QD
     Route: 048
     Dates: start: 20211021
  3. ORGOVYX [Suspect]
     Active Substance: RELUGOLIX
     Dosage: UNK
  4. ORGOVYX [Suspect]
     Active Substance: RELUGOLIX
     Dosage: UNK
     Route: 048
  5. ORGOVYX [Suspect]
     Active Substance: RELUGOLIX
     Dosage: UNK
     Route: 048
  6. ROPINIROLE HYDROCHLORIDE [Suspect]
     Active Substance: ROPINIROLE HYDROCHLORIDE
     Indication: Parkinson^s disease
     Dosage: UNK
     Route: 065
  7. BUMEX [Suspect]
     Active Substance: BUMETANIDE
     Dosage: UNK
     Route: 065
  8. TEZSPIRE [Suspect]
     Active Substance: TEZEPELUMAB-EKKO
     Dosage: UNK
     Route: 065
  9. OXYGEN [Concomitant]
     Active Substance: OXYGEN
     Indication: Respiratory failure
     Dosage: UNK
     Route: 065

REACTIONS (18)
  - Pericardial effusion [Unknown]
  - Renal failure [Unknown]
  - Cardiac failure congestive [Unknown]
  - Heart rate abnormal [Unknown]
  - Pulmonary pain [Unknown]
  - Dehydration [Unknown]
  - Pollakiuria [Unknown]
  - Illness [Unknown]
  - Joint injury [Unknown]
  - Skin laceration [Unknown]
  - Dyspnoea [Unknown]
  - Depressed mood [Unknown]
  - Myalgia [Recovered/Resolved]
  - Malaise [Unknown]
  - Asthenia [Unknown]
  - Arthralgia [Not Recovered/Not Resolved]
  - Gynaecomastia [Unknown]
  - Headache [Unknown]

NARRATIVE: CASE EVENT DATE: 20211001
